FAERS Safety Report 6934508-1 (Version None)
Quarter: 2010Q3

REPORT INFORMATION
  Report Type: 
  Country: None (occurrence: None)
  Receive Date: 20100820
  Receipt Date: 20100809
  Transmission Date: 20110219
  Serious: Yes (Hospitalization)
  Sender: FDA-Public Use
  Company Number: SI-WATSON-2010-11011

PATIENT
  Age: 82 Year
  Sex: Female

DRUGS (3)
  1. FORTAMET [Suspect]
     Indication: DIABETES MELLITUS
     Dosage: 850 MG, TID
  2. DICLOFENAC [Suspect]
     Indication: BACK PAIN
     Dosage: 50 MG, UNK
  3. ENALAPRIL (WATSON LABORATORIES) [Suspect]
     Indication: HYPERTENSION
     Dosage: 20 MG , UNK

REACTIONS (5)
  - BLOOD GLUCOSE INCREASED [None]
  - DRUG INTERACTION [None]
  - HYPERKALAEMIA [None]
  - METABOLIC ACIDOSIS [None]
  - RENAL FAILURE [None]
